FAERS Safety Report 17189694 (Version 2)
Quarter: 2019Q4

REPORT INFORMATION
  Report Type: Report from Study
  Country: JP (occurrence: JP)
  Receive Date: 20191223
  Receipt Date: 20191223
  Transmission Date: 20200122
  Serious: Yes (Other)
  Sender: FDA-Public Use
  Company Number: JP-SA-2019SA351251

PATIENT
  Age: 75 Year
  Sex: Male
  Weight: 63 kg

DRUGS (16)
  1. 5-FU [FLUOROURACIL] [Concomitant]
     Active Substance: FLUOROURACIL
     Dosage: 2400 MG/M2, Q3W
     Route: 041
     Dates: start: 20190513, end: 20190624
  2. 5-FU [FLUOROURACIL] [Concomitant]
     Active Substance: FLUOROURACIL
     Dosage: 2400 MG/M2, Q3W
     Route: 041
     Dates: start: 20181119, end: 20181210
  3. 5-FU [FLUOROURACIL] [Concomitant]
     Active Substance: FLUOROURACIL
     Dosage: 400 MG/M2, Q3W
     Route: 040
     Dates: start: 20190513, end: 20190624
  4. AFLIBERCEPT [Suspect]
     Active Substance: AFLIBERCEPT
     Indication: COLON CANCER
     Dosage: 4 MG/KG, Q3W
     Route: 041
     Dates: start: 20181119, end: 20181210
  5. LEUCOVORIN [CALCIUM FOLINATE] [Concomitant]
     Active Substance: LEUCOVORIN
     Dosage: 200 MG/M2, Q3W
     Route: 065
     Dates: start: 20190513, end: 20190624
  6. IRINOTECAN HYDROCHLORIDE. [Concomitant]
     Active Substance: IRINOTECAN HYDROCHLORIDE
     Dosage: 150 MG/M2, Q3W
     Route: 065
     Dates: start: 20190513, end: 20190624
  7. 5-FU [FLUOROURACIL] [Concomitant]
     Active Substance: FLUOROURACIL
     Indication: COLON CANCER
     Dosage: 400 MG/M2, Q3W
     Route: 040
     Dates: start: 20181119, end: 20181210
  8. AFLIBERCEPT [Suspect]
     Active Substance: AFLIBERCEPT
     Dosage: 4 MG/KG, Q3W
     Route: 041
     Dates: start: 20190304, end: 20190415
  9. 5-FU [FLUOROURACIL] [Concomitant]
     Active Substance: FLUOROURACIL
     Dosage: 2400 MG/M2, Q3W
     Route: 041
     Dates: start: 20190304, end: 20190415
  10. AFLIBERCEPT [Suspect]
     Active Substance: AFLIBERCEPT
     Dosage: 4 MG/KG, Q3W
     Route: 041
     Dates: start: 20190513, end: 20190603
  11. AFLIBERCEPT [Suspect]
     Active Substance: AFLIBERCEPT
     Dosage: 2 MG/KG, 1X
     Route: 041
     Dates: start: 20190624, end: 20190624
  12. LEUCOVORIN [CALCIUM FOLINATE] [Concomitant]
     Active Substance: LEUCOVORIN
     Indication: COLON CANCER
     Dosage: 200 MG/M2, Q3W
     Route: 065
     Dates: start: 20181119, end: 20181210
  13. LEUCOVORIN [CALCIUM FOLINATE] [Concomitant]
     Active Substance: LEUCOVORIN
     Dosage: 200 MG/M2, Q3W
     Route: 065
     Dates: start: 20190304, end: 20190415
  14. 5-FU [FLUOROURACIL] [Concomitant]
     Active Substance: FLUOROURACIL
     Dosage: 400 MG/M2, Q3W
     Route: 040
     Dates: start: 20190304, end: 20190415
  15. IRINOTECAN HYDROCHLORIDE. [Concomitant]
     Active Substance: IRINOTECAN HYDROCHLORIDE
     Indication: COLON CANCER
     Dosage: 180 MG/M2, Q3W
     Route: 065
     Dates: start: 20181119, end: 20181210
  16. IRINOTECAN HYDROCHLORIDE. [Concomitant]
     Active Substance: IRINOTECAN HYDROCHLORIDE
     Dosage: 150 MG/M2, Q3W
     Route: 065
     Dates: start: 20190304, end: 20190415

REACTIONS (1)
  - Interstitial lung disease [Recovering/Resolving]

NARRATIVE: CASE EVENT DATE: 20190218
